FAERS Safety Report 4973481-2 (Version None)
Quarter: 2006Q2

REPORT INFORMATION
  Report Type: 
  Country: None (occurrence: None)
  Receive Date: 20060407
  Receipt Date: 20060328
  Transmission Date: 20061013
  Serious: Yes (Other)
  Sender: FDA-Public Use
  Company Number: 2006027910

PATIENT
  Age: 44 Year
  Sex: Male
  Weight: 87.0906 kg

DRUGS (7)
  1. VIAGRA [Suspect]
     Indication: ERECTILE DYSFUNCTION
     Dosage: 50 MG (50 MG, 1 AS NECESSARY), ORAL
     Route: 048
     Dates: start: 20020901
  2. ZOCOR [Concomitant]
  3. ZANTAC [Concomitant]
  4. ADDERALL 10 [Concomitant]
  5. ZOLOFT [Concomitant]
  6. LESCOL [Concomitant]
  7. AMBIEN [Concomitant]

REACTIONS (10)
  - CELLULITIS [None]
  - CONTUSION [None]
  - EXCORIATION [None]
  - HEPATIC STEATOSIS [None]
  - ONYCHOMYCOSIS [None]
  - OPTIC ISCHAEMIC NEUROPATHY [None]
  - OPTIC NEURITIS [None]
  - PAIN IN EXTREMITY [None]
  - ROAD TRAFFIC ACCIDENT [None]
  - VISUAL ACUITY REDUCED [None]
